FAERS Safety Report 25586208 (Version 1)
Quarter: 2025Q3

REPORT INFORMATION
  Report Type: Spontaneous
  Country: US (occurrence: None)
  Receive Date: 20250719
  Receipt Date: 20250719
  Transmission Date: 20251021
  Serious: No
  Sender: FDA-CTU
  Company Number: None

PATIENT
  Age: 10 Year
  Sex: Male
  Weight: 76 kg

DRUGS (8)
  1. DUPIXENT [Suspect]
     Active Substance: DUPILUMAB
     Indication: Asthma
     Route: 058
     Dates: start: 20240515
  2. ALBUTEROL 0.083% (2.5MG/3ML) NEB SOLN [Concomitant]
  3. SYMBICORT 160MG/4.5MCG INL [Concomitant]
  4. DIPHENHYDRAMINE 50MG CAPSULES [Concomitant]
  5. FLUTICASONE 50MCG NASAL SPRAY [Concomitant]
  6. MONTELUKAST 5MG CHEW TAB [Concomitant]
  7. HYDROCORTISONE [Concomitant]
     Active Substance: HYDROCORTISONE
  8. ALBUTEROL 90MCG/ACT HFA INL [Concomitant]

REACTIONS (1)
  - Vitiligo [None]

NARRATIVE: CASE EVENT DATE: 20250701
